FAERS Safety Report 5589611-8 (Version None)
Quarter: 2008Q1

REPORT INFORMATION
  Report Type: 
  Country: None (occurrence: None)
  Receive Date: 20080114
  Receipt Date: 20080110
  Transmission Date: 20080703
  Serious: Yes (Hospitalization)
  Sender: FDA-Public Use
  Company Number: A0702447A

PATIENT
  Age: 53 Year
  Sex: Female

DRUGS (4)
  1. WELLBUTRIN XL [Suspect]
     Dosage: 300MG PER DAY
     Route: 048
     Dates: start: 20060301
  2. WELLBUTRIN SR [Suspect]
     Dosage: 150MG TWICE PER DAY
     Route: 048
     Dates: start: 20060101
  3. VITAMINS [Concomitant]
  4. UNSPECIFIED MEDICATION [Concomitant]

REACTIONS (6)
  - AFFECT LABILITY [None]
  - CONVULSION [None]
  - DIZZINESS [None]
  - FALL [None]
  - FLIGHT OF IDEAS [None]
  - LOSS OF CONSCIOUSNESS [None]
